FAERS Safety Report 19653739 (Version 3)
Quarter: 2021Q4

REPORT INFORMATION
  Report Type: Spontaneous
  Country: US (occurrence: US)
  Receive Date: 20210804
  Receipt Date: 20211005
  Transmission Date: 20220303
  Serious: Yes (Death, Other)
  Sender: FDA-Public Use
  Company Number: US-BEH-2021134625

PATIENT
  Age: 15 Year
  Sex: Male

DRUGS (17)
  1. HIZENTRA [Suspect]
     Active Substance: HUMAN IMMUNOGLOBULIN G
     Indication: Hypogammaglobulinaemia
     Dosage: 5 GRAM, QW
     Route: 058
     Dates: start: 20210605
  2. HIZENTRA [Suspect]
     Active Substance: HUMAN IMMUNOGLOBULIN G
     Indication: Primary immunodeficiency syndrome
     Dosage: 6 GRAM, QW
     Route: 058
     Dates: start: 20210512, end: 20210727
  3. HIZENTRA [Suspect]
     Active Substance: HUMAN IMMUNOGLOBULIN G
     Dosage: UNK
     Route: 058
     Dates: start: 202104
  4. SILDENAFIL [Concomitant]
     Active Substance: SILDENAFIL
     Route: 065
  5. AMLODIPINE [Concomitant]
     Active Substance: AMLODIPINE BESYLATE
     Route: 065
  6. ASPIRIN [Concomitant]
     Active Substance: ASPIRIN
     Route: 065
  7. ATENOLOL [Concomitant]
     Active Substance: ATENOLOL
     Route: 065
  8. BUDESONIDE ALMUS [Concomitant]
     Route: 065
  9. DECARA [COLECALCIFEROL] [Concomitant]
     Route: 065
  10. DESMOPRESSIN [Concomitant]
     Active Substance: DESMOPRESSIN
     Route: 065
  11. ENALAPRIL [Concomitant]
     Active Substance: ENALAPRIL
     Route: 065
  12. EPINEPHRINE [Concomitant]
     Active Substance: EPINEPHRINE
     Route: 065
  13. FUROSEMIDE [Concomitant]
     Active Substance: FUROSEMIDE
     Route: 065
  14. HYDROCORTISON ACIS [Concomitant]
     Route: 065
  15. LIDOCAINE\PRILOCAINE [Concomitant]
     Active Substance: LIDOCAINE\PRILOCAINE
     Route: 061
  16. NORDITROPIN [Concomitant]
     Active Substance: SOMATROPIN
     Route: 065
  17. SPIRONOLACTONE [Concomitant]
     Active Substance: SPIRONOLACTONE
     Route: 065

REACTIONS (2)
  - Ischaemic stroke [Fatal]
  - Mental status changes [Fatal]

NARRATIVE: CASE EVENT DATE: 20210727
